FAERS Safety Report 11062056 (Version 1)
Quarter: 2015Q2

REPORT INFORMATION
  Report Type: Spontaneous
  Country: JP (occurrence: None)
  Receive Date: 20150422
  Receipt Date: 20150422
  Transmission Date: 20150821
  Serious: No
  Sender: FDA-Public Use
  Company Number: PR 7642

PATIENT
  Age: 47 Year
  Sex: Female

DRUGS (12)
  1. LIVOSTIN (LEVOCABASTINE HYDROCHLORIDE) [Concomitant]
  2. NIZATIDINE. [Concomitant]
     Active Substance: NIZATIDINE
  3. DAI-KENCHU-TO (ASIAN GINSENG, SICHUAN PEPPER, GINGER) [Concomitant]
  4. ZYPREXA [Concomitant]
     Active Substance: OLANZAPINE
  5. CRAVIT (LEVOFLOXACIN) EYE DROPS, 0.5% [Concomitant]
     Active Substance: LEVOFLOXACIN
  6. ETIZOLAM [Concomitant]
     Active Substance: ETIZOLAM
  7. ECABET SODINE [Concomitant]
  8. NEXIUM [Concomitant]
     Active Substance: ESOMEPRAZOLE MAGNESIUM
  9. CHOTO-SAN GRANULES [Concomitant]
  10. ZIOPTAN [Suspect]
     Active Substance: TAFLUPROST
     Indication: OPEN ANGLE GLAUCOMA
     Dosage: 2 GTT, SINGLE/DAY
     Dates: start: 20120824, end: 20141210
  11. MYSLEE (ZOLPIDEM TARTRATE) [Concomitant]
  12. GASMOTIN (MOSAPRIDE CITRATE) [Concomitant]
     Active Substance: MOSAPRIDE CITRATE

REACTIONS (6)
  - Abdominal discomfort [None]
  - Gastroenteritis [None]
  - Glaucoma [None]
  - Sleep disorder [None]
  - Seasonal allergy [None]
  - Gastric cancer [None]

NARRATIVE: CASE EVENT DATE: 20130308
